FAERS Safety Report 9775885 (Version 1)
Quarter: 2013Q4

REPORT INFORMATION
  Report Type: Spontaneous
  Country: IT (occurrence: IT)
  Receive Date: 20131220
  Receipt Date: 20131220
  Transmission Date: 20140711
  Serious: Yes (Other)
  Sender: FDA-Public Use
  Company Number: IT-TEVA-451237ISR

PATIENT
  Age: 65 Year
  Sex: Female

DRUGS (5)
  1. OLANZAPINA TEVA [Suspect]
     Indication: BIPOLAR DISORDER
     Dosage: 2.5 MILLIGRAM DAILY;
     Route: 048
     Dates: start: 20130911, end: 20131101
  2. LAMICTAL 50 MG [Concomitant]
     Dosage: 150 MILLIGRAM DAILY; DISPERSIBLE TABLET
     Route: 048
  3. KEPPRA 500 MG [Concomitant]
     Dosage: 500 MILLIGRAM DAILY;
     Route: 048
  4. TEGRETOL 200 MG [Concomitant]
     Dosage: 400 MILLIGRAM DAILY;
     Route: 048
  5. CARDIOASPIRIN 100 MG [Concomitant]
     Dosage: 100 MILLIGRAM DAILY; GASTRO-RESISTANT TABLETS
     Route: 048

REACTIONS (3)
  - Confusional state [Recovered/Resolved]
  - Drug effect decreased [Recovered/Resolved]
  - Product substitution issue [Unknown]
